FAERS Safety Report 23852876 (Version 1)
Quarter: 2024Q2

REPORT INFORMATION
  Report Type: Spontaneous
  Country: US (occurrence: None)
  Receive Date: 20240513
  Receipt Date: 20240513
  Transmission Date: 20240716
  Serious: Yes (Disabling)
  Sender: FDA-Public Use
  Company Number: None

PATIENT
  Age: 72 Year
  Sex: Male
  Weight: 114.75 kg

DRUGS (2)
  1. EFGARTIGIMOD ALFA [Suspect]
     Active Substance: EFGARTIGIMOD ALFA
     Indication: Myasthenia gravis
     Dosage: FREQUENCY : WEEKLY;?
     Route: 041
     Dates: start: 20240301, end: 20240508
  2. VYVGART [Concomitant]
     Active Substance: EFGARTIGIMOD ALFA-FCAB
     Dates: start: 20240301, end: 20240508

REACTIONS (1)
  - Herpes zoster [None]

NARRATIVE: CASE EVENT DATE: 20240301
